FAERS Safety Report 24767520 (Version 2)
Quarter: 2024Q4

REPORT INFORMATION
  Report Type: Spontaneous
  Country: CA (occurrence: CA)
  Receive Date: 20241223
  Receipt Date: 20241230
  Transmission Date: 20250115
  Serious: Yes (Other)
  Sender: PFIZER
  Company Number: CA-MLMSERVICE-20241209-PI285129-00206-1

PATIENT
  Age: 7 Year
  Sex: Female

DRUGS (6)
  1. LORAZEPAM [Suspect]
     Active Substance: LORAZEPAM
     Indication: Catatonia
     Dosage: 1 MG, SINGLE
     Route: 042
  2. LORAZEPAM [Suspect]
     Active Substance: LORAZEPAM
     Dosage: SPACED ONE MINUTE APART (SECOND DOSE)
     Route: 042
  3. LORAZEPAM [Suspect]
     Active Substance: LORAZEPAM
     Dosage: ADMINISTERED HALF AN HOUR AFTER THE INITIAL DOSING (THIRD DOSE)
     Route: 042
  4. LORAZEPAM [Suspect]
     Active Substance: LORAZEPAM
     Dosage: ADMINISTERED ONE HOUR AFTER THE INITIAL DOSING (FOURTH DOSE)
     Route: 042
  5. LORAZEPAM [Suspect]
     Active Substance: LORAZEPAM
     Dosage: 1 MG, EVERY 4 HRS; WHILE AWAKE
     Route: 042
  6. LORAZEPAM [Suspect]
     Active Substance: LORAZEPAM
     Dosage: 1 MG, 3X/DAY, WHILE AWAKE
     Route: 048

REACTIONS (5)
  - Self-destructive behaviour [Unknown]
  - Tearfulness [Unknown]
  - Emotional disorder [Unknown]
  - Off label use [Unknown]
  - Off label use [Unknown]
